FAERS Safety Report 20153242 (Version 4)
Quarter: 2022Q1

REPORT INFORMATION
  Report Type: Spontaneous
  Country: JP (occurrence: JP)
  Receive Date: 20211206
  Receipt Date: 20220210
  Transmission Date: 20220423
  Serious: Yes (Other)
  Sender: FDA-Public Use
  Company Number: JP-ELI_LILLY_AND_COMPANY-JP202111011880

PATIENT
  Age: 55 Year
  Sex: Female

DRUGS (6)
  1. HUMATROPE [Suspect]
     Active Substance: SOMATROPIN
     Indication: Product used for unknown indication
     Dosage: 0.125 MG, DAILY
     Route: 058
     Dates: start: 20161203, end: 202111
  2. LEVOTHYROXINE [Suspect]
     Active Substance: LEVOTHYROXINE
     Indication: Hypothyroidism
     Dosage: 50 UG
     Route: 048
     Dates: start: 2004
  3. ONEALFA [Concomitant]
     Active Substance: ALFACALCIDOL
     Dosage: 1 UG, DAILY
  4. MENATETRENONE [Concomitant]
     Active Substance: MENATETRENONE
     Dosage: 30 MG
     Route: 048
  5. CALCIUM ASPARTATE [Concomitant]
     Active Substance: CALCIUM ASPARTATE
     Dosage: 200 MG
     Route: 048
  6. DUPHASTON [Concomitant]
     Active Substance: DYDROGESTERONE
     Dosage: 5 MG
     Route: 048

REACTIONS (1)
  - Meningioma [Unknown]

NARRATIVE: CASE EVENT DATE: 20190601
